FAERS Safety Report 4988209-X (Version None)
Quarter: 2006Q2

REPORT INFORMATION
  Report Type: 
  Country: None (occurrence: None)
  Receive Date: 20060425
  Receipt Date: 20060412
  Transmission Date: 20061013
  Serious: Yes (Other)
  Sender: FDA-Public Use
  Company Number: 2006050725

PATIENT
  Sex: Female

DRUGS (1)
  1. BEXTRA [Suspect]
     Indication: PAIN
     Dosage: UNKNOWN
     Route: 065
     Dates: start: 20050303, end: 20050401

REACTIONS (11)
  - ANXIETY [None]
  - DEPRESSION [None]
  - EMOTIONAL DISTRESS [None]
  - ERYTHEMA [None]
  - EXTRAVASATION [None]
  - HYPERSENSITIVITY [None]
  - INJURY [None]
  - MENTAL DISORDER [None]
  - PRURITUS [None]
  - SCAR [None]
  - SKIN LESION [None]
